FAERS Safety Report 7428748-5 (Version None)
Quarter: 2011Q2

REPORT INFORMATION
  Report Type: 
  Country: None (occurrence: None)
  Receive Date: 20110421
  Receipt Date: 20110419
  Transmission Date: 20111010
  Serious: Yes (Other)
  Sender: FDA-Public Use
  Company Number: US-PFIZER INC-2011085720

PATIENT
  Sex: Male
  Weight: 92.971 kg

DRUGS (1)
  1. XALATAN [Suspect]
     Indication: OPEN ANGLE GLAUCOMA
     Dosage: 2 GTT, DAILY
     Route: 047

REACTIONS (2)
  - VISION BLURRED [None]
  - OCULAR HYPERTENSION [None]
